FAERS Safety Report 5146420-1 (Version None)
Quarter: 2006Q4

REPORT INFORMATION
  Report Type: 
  Country: None (occurrence: None)
  Receive Date: 20061102
  Receipt Date: 20061019
  Transmission Date: 20070319
  Serious: Yes (Other)
  Sender: FDA-Public Use
  Company Number: 2006128380

PATIENT
  Age: 43 Year
  Sex: Male
  Weight: 95.2554 kg

DRUGS (12)
  1. NEURONTIN [Suspect]
     Indication: PAIN
     Dosage: 900 MG (2 IN 1 D)
  2. LYRICA [Suspect]
     Indication: PAIN
     Dosage: (2 IN 1 D)
     Dates: start: 20060101
  3. MORPHINE [Suspect]
     Indication: PAIN
  4. TRICOR [Concomitant]
  5. PIROXICAM [Concomitant]
  6. ATENOLOL [Concomitant]
  7. PRILOSEC [Concomitant]
  8. TIZANIDINE HCL [Concomitant]
  9. KLOR-CON [Concomitant]
  10. CRESTOR [Concomitant]
  11. HYDROCODONE (HYDROCODONE) [Concomitant]
  12. ADVIL [Concomitant]

REACTIONS (8)
  - AFFECT LABILITY [None]
  - ANGER [None]
  - ATTENTION DEFICIT/HYPERACTIVITY DISORDER [None]
  - IMPAIRED WORK ABILITY [None]
  - INSOMNIA [None]
  - MEMORY IMPAIRMENT [None]
  - VISUAL DISTURBANCE [None]
  - WEIGHT INCREASED [None]
